FAERS Safety Report 15152356 (Version 1)
Quarter: 2018Q3

REPORT INFORMATION
  Report Type: Spontaneous
  Country: DE (occurrence: DE)
  Receive Date: 20180717
  Receipt Date: 20180717
  Transmission Date: 20181010
  Serious: Yes (Death, Other)
  Sender: FDA-Public Use
  Company Number: DE-TEVA-2018-DE-926703

PATIENT
  Sex: Female
  Weight: 80 kg

DRUGS (3)
  1. AMISULPRID [Suspect]
     Active Substance: AMISULPRIDE
     Indication: SCHIZOPHRENIA
     Route: 048
  2. IMIPRAMIN [Suspect]
     Active Substance: IMIPRAMINE
     Indication: SCHIZOPHRENIA
     Route: 048
  3. TRIMIPRAMIN [Suspect]
     Active Substance: TRIMIPRAMINE MALEATE
     Indication: SCHIZOPHRENIA
     Route: 048

REACTIONS (3)
  - Sepsis [Fatal]
  - Pancytopenia [Fatal]
  - Bone marrow disorder [Fatal]
